FAERS Safety Report 10408733 (Version 1)
Quarter: 2014Q3

REPORT INFORMATION
  Report Type: Report from Study
  Country: US (occurrence: US)
  Receive Date: 20140826
  Receipt Date: 20140826
  Transmission Date: 20150326
  Serious: Yes (Hospitalization)
  Sender: FDA-Public Use
  Company Number: US-ROCHE-1451952

PATIENT
  Age: 56 Year
  Sex: Female
  Weight: 62.72 kg

DRUGS (8)
  1. PEMETREXED [Suspect]
     Active Substance: PEMETREXED
     Indication: NON-SMALL CELL LUNG CANCER
     Dosage: LAST DATE OF DOSE ADMINISTERED : 12/SEP/2013
     Route: 042
     Dates: start: 20130711
  2. OMEPRAZOLE. [Concomitant]
     Active Substance: OMEPRAZOLE
  3. BEVACIZUMAB [Suspect]
     Active Substance: BEVACIZUMAB
     Indication: NON-SMALL CELL LUNG CANCER
     Dosage: LAST DATE OF ADMINISTRATION: 23/JAN/2014.
     Route: 042
     Dates: start: 20130711
  4. ATENOLOL. [Concomitant]
     Active Substance: ATENOLOL
  5. ROSUVASTATIN CALCIUM [Concomitant]
     Active Substance: ROSUVASTATIN CALCIUM
  6. VARENICLINE TARTRATE [Concomitant]
     Active Substance: VARENICLINE TARTRATE
  7. LORAZEPAM. [Concomitant]
     Active Substance: LORAZEPAM
  8. CISPLATIN. [Suspect]
     Active Substance: CISPLATIN
     Indication: NON-SMALL CELL LUNG CANCER
     Dosage: LAST DATE OF ADMINISTRATION: 12/SEP/2013.
     Route: 042
     Dates: start: 20130711

REACTIONS (3)
  - Non-cardiac chest pain [Unknown]
  - Dyspnoea [Unknown]
  - Gastrooesophageal reflux disease [Unknown]

NARRATIVE: CASE EVENT DATE: 20140217
